FAERS Safety Report 5161780-3 (Version None)
Quarter: 2006Q4

REPORT INFORMATION
  Report Type: 
  Country: None (occurrence: None)
  Receive Date: 20061121
  Receipt Date: 20061020
  Transmission Date: 20070319
  Serious: Yes (Hospitalization)
  Sender: FDA-Public Use
  Company Number: 2006138178

PATIENT
  Sex: Female

DRUGS (5)
  1. NEURONTIN [Suspect]
     Indication: PAIN
  2. LYRICA [Suspect]
     Indication: PAIN
     Dosage: 600 MG (300 MG, 2 IN 1 D)
  3. OXYCODONE HCL [Concomitant]
  4. OXYCODONE HCL [Concomitant]
  5. ALL OTHER THERAPEUTIC PRODUCTS (ALL OTHER THERAPEUTIC PRODUCTS) [Concomitant]

REACTIONS (6)
  - DRUG INTOLERANCE [None]
  - FEELING COLD [None]
  - FEELING HOT [None]
  - HYPERHIDROSIS [None]
  - RESPIRATORY DISORDER [None]
  - VOMITING [None]
